FAERS Safety Report 25347265 (Version 8)
Quarter: 2025Q3

REPORT INFORMATION
  Report Type: Spontaneous
  Country: JP (occurrence: JP)
  Receive Date: 20250522
  Receipt Date: 20250728
  Transmission Date: 20251021
  Serious: Yes (Death, Other)
  Sender: AMGEN
  Company Number: JP-AMGEN-JPNSP2025098137

PATIENT
  Age: 66 Year
  Sex: Male
  Weight: 50 kg

DRUGS (5)
  1. IMDELLTRA [Suspect]
     Active Substance: TARLATAMAB-DLLE
     Indication: Small cell lung cancer
     Dosage: 1 MILLIGRAM, QD, DRIP INFUSION
     Route: 040
     Dates: start: 20250508, end: 20250508
  2. DEXAMETHASONE SODIUM PHOSPHATE [Concomitant]
     Active Substance: DEXAMETHASONE SODIUM PHOSPHATE
     Indication: Small cell lung cancer
     Dosage: 6.6 MILLIGRAM, QD
     Route: 040
     Dates: start: 20250508, end: 20250508
  3. DEXAMETHASONE SODIUM PHOSPHATE [Concomitant]
     Active Substance: DEXAMETHASONE SODIUM PHOSPHATE
     Indication: Cytokine release syndrome
     Route: 040
     Dates: start: 20250510
  4. OXYCODONE [Concomitant]
     Active Substance: OXYCODONE
     Indication: Small cell lung cancer
     Dosage: 5 MILLIGRAM, BID
     Dates: start: 20250508, end: 20250509
  5. TENELIGLIPTIN [Concomitant]
     Active Substance: TENELIGLIPTIN
     Indication: Type 2 diabetes mellitus
     Dosage: 20 MILLIGRAM, QD
     Dates: start: 20250129, end: 20250509

REACTIONS (7)
  - Cytokine release syndrome [Fatal]
  - Small cell lung cancer [Fatal]
  - Beta haemolytic streptococcal infection [Fatal]
  - Hyperkalaemia [Fatal]
  - Renal failure [Fatal]
  - Cardiac arrest [Fatal]
  - Multiple organ dysfunction syndrome [Unknown]

NARRATIVE: CASE EVENT DATE: 20250501
